FAERS Safety Report 4817348-9 (Version None)
Quarter: 2005Q4

REPORT INFORMATION
  Report Type: 
  Country: None (occurrence: None)
  Receive Date: 20051101
  Receipt Date: 20050712
  Transmission Date: 20060501
  Serious: Yes (Other)
  Sender: FDA-Public Use
  Company Number: IE-BRISTOL-MYERS SQUIBB COMPANY-13036447

PATIENT
  Sex: Male

DRUGS (2)
  1. REYATAZ [Suspect]
     Route: 048
     Dates: start: 20040501
  2. RITONAVIR [Concomitant]

REACTIONS (1)
  - HAEMOLYSIS [None]
